FAERS Safety Report 5871367-2 (Version None)
Quarter: 2008Q3

REPORT INFORMATION
  Report Type: 
  Country: None (occurrence: None)
  Receive Date: 20080904
  Receipt Date: 20080904
  Transmission Date: 20090109
  Serious: Yes (Other)
  Sender: FDA-Public Use
  Company Number: None

PATIENT
  Sex: Female
  Weight: 58.0604 kg

DRUGS (1)
  1. DIDRONEL [Suspect]
     Indication: OSTEOPOROSIS
     Dosage: 1 PER DAY
     Dates: start: 20040501, end: 20040514

REACTIONS (1)
  - ARTHRALGIA [None]
